FAERS Safety Report 5861538-3 (Version None)
Quarter: 2008Q3

REPORT INFORMATION
  Report Type: 
  Country: None (occurrence: None)
  Receive Date: 20080827
  Receipt Date: 20080519
  Transmission Date: 20090109
  Serious: No
  Sender: FDA-Public Use
  Company Number: US-ABBOTT-08P-163-0452237-00

PATIENT
  Sex: Female
  Weight: 85.352 kg

DRUGS (8)
  1. COATED PDS [Suspect]
     Indication: BLOOD TRIGLYCERIDES INCREASED
     Dosage: TAKEN AT BEDTIME
     Route: 048
     Dates: start: 20080516
  2. METOPROLOL TARTRATE [Concomitant]
     Indication: HYPERTENSION
     Route: 048
  3. NIFEDIPINE [Concomitant]
     Indication: CARDIAC VALVE DISEASE
     Dosage: NIFEDIPINE ER (XL)
     Route: 048
  4. NIFEDIPINE [Concomitant]
     Indication: BLOOD PRESSURE
  5. ACETYLSALICYLIC ACID SRT [Concomitant]
     Indication: SUPPLEMENTATION THERAPY
     Route: 048
  6. ONE A DAY WOMENS VITAMIN [Concomitant]
     Indication: VITAMIN SUPPLEMENTATION
     Route: 048
  7. COMBIVENT [Concomitant]
     Indication: ASTHMA
     Route: 055
  8. COMBIVENT [Concomitant]
     Indication: CHRONIC OBSTRUCTIVE PULMONARY DISEASE

REACTIONS (3)
  - HOT FLUSH [None]
  - NERVOUSNESS [None]
  - POLLAKIURIA [None]
